FAERS Safety Report 6336600-1 (Version None)
Quarter: 2009Q3

REPORT INFORMATION
  Report Type: 
  Country: None (occurrence: None)
  Receive Date: 20090901
  Receipt Date: 20090818
  Transmission Date: 20100115
  Serious: Yes (Other)
  Sender: FDA-Public Use
  Company Number: SE-JNJFOC-20090806289

PATIENT
  Sex: Female

DRUGS (10)
  1. CONCERTA [Suspect]
     Indication: ATTENTION DEFICIT/HYPERACTIVITY DISORDER
     Route: 048
  2. DEPO-PROVERA [Interacting]
     Indication: DRUG USE FOR UNKNOWN INDICATION
     Route: 065
  3. PROPRANOLOL [Interacting]
     Indication: BLOOD PRESSURE
     Route: 065
  4. IKTORIVIL [Interacting]
     Indication: DRUG USE FOR UNKNOWN INDICATION
     Route: 065
  5. ZOPICLONE [Interacting]
     Indication: DRUG USE FOR UNKNOWN INDICATION
     Route: 065
  6. SERTRALINE HCL [Interacting]
     Indication: DRUG USE FOR UNKNOWN INDICATION
     Route: 065
  7. MIRTAZAPINE [Interacting]
     Indication: DRUG USE FOR UNKNOWN INDICATION
     Route: 065
  8. LERGIGAN COMP. [Interacting]
     Route: 065
  9. LERGIGAN COMP. [Interacting]
     Route: 065
  10. LERGIGAN COMP. [Interacting]
     Indication: DRUG USE FOR UNKNOWN INDICATION
     Route: 065

REACTIONS (8)
  - AGGRESSION [None]
  - AGITATION [None]
  - DEPRESSED MOOD [None]
  - DEPRESSION [None]
  - DRUG INTERACTION [None]
  - MOOD ALTERED [None]
  - NERVOUSNESS [None]
  - RESTLESSNESS [None]
